FAERS Safety Report 19053040 (Version 1)
Quarter: 2021Q1

REPORT INFORMATION
  Report Type: Spontaneous
  Country: CA (occurrence: CA)
  Receive Date: 20210325
  Receipt Date: 20210325
  Transmission Date: 20210420
  Serious: Yes (Hospitalization)
  Sender: FDA-Public Use
  Company Number: CA-LUPIN PHARMACEUTICALS INC.-2021-03697

PATIENT
  Age: 83 Year
  Sex: Female

DRUGS (9)
  1. CLARITHROMYCIN. [Interacting]
     Active Substance: CLARITHROMYCIN
     Indication: PNEUMONIA PSEUDOMONAL
  2. RIFAMPIN. [Interacting]
     Active Substance: RIFAMPIN
     Indication: PNEUMONIA PSEUDOMONAL
  3. RIFABUTIN. [Interacting]
     Active Substance: RIFABUTIN
     Indication: MYCOBACTERIUM AVIUM COMPLEX INFECTION
     Dosage: 150 MILLIGRAM, QD
     Route: 065
  4. RIFAMPIN. [Suspect]
     Active Substance: RIFAMPIN
     Indication: MYCOBACTERIUM AVIUM COMPLEX INFECTION
     Dosage: 600 MILLIGRAM, QD
     Route: 048
  5. WARFARIN [Interacting]
     Active Substance: WARFARIN
     Indication: AORTIC VALVE REPLACEMENT
     Dosage: UNK
     Route: 048
  6. WARFARIN [Interacting]
     Active Substance: WARFARIN
     Dosage: UNK, DOSE GRADUALLY DECREASED
     Route: 048
  7. WARFARIN [Interacting]
     Active Substance: WARFARIN
     Indication: MITRAL VALVE REPLACEMENT
     Dosage: UNK, DOSE INCREASED
     Route: 048
  8. CLARITHROMYCIN. [Interacting]
     Active Substance: CLARITHROMYCIN
     Indication: MYCOBACTERIUM AVIUM COMPLEX INFECTION
     Dosage: 250 MILLIGRAM, QD
     Route: 065
  9. RIFABUTIN. [Interacting]
     Active Substance: RIFABUTIN
     Indication: PNEUMONIA PSEUDOMONAL

REACTIONS (2)
  - Anticoagulation drug level decreased [Recovered/Resolved]
  - Drug interaction [Unknown]
